FAERS Safety Report 5331827-X (Version None)
Quarter: 2007Q2

REPORT INFORMATION
  Report Type: 
  Country: None (occurrence: None)
  Receive Date: 20070523
  Receipt Date: 20070514
  Transmission Date: 20071010
  Serious: Yes (Other)
  Sender: FDA-Public Use
  Company Number: JP-JNJFOC-20070504167

PATIENT
  Age: 56 Year
  Sex: Female

DRUGS (8)
  1. REMICADE [Suspect]
     Route: 042
  2. REMICADE [Suspect]
     Route: 042
  3. REMICADE [Suspect]
     Indication: RHEUMATOID ARTHRITIS
     Route: 042
  4. METHOTREXATE [Concomitant]
     Indication: RHEUMATOID ARTHRITIS
     Route: 048
  5. PREDNISOLONE [Concomitant]
  6. TACROLIMUS [Concomitant]
  7. MIZORIBINE [Concomitant]
  8. D-PENICILLAMINE [Concomitant]

REACTIONS (2)
  - LARGE INTESTINE CARCINOMA [None]
  - THYROID CANCER [None]
